FAERS Safety Report 20950733 (Version 5)
Quarter: 2022Q3

REPORT INFORMATION
  Report Type: Spontaneous
  Country: US (occurrence: US)
  Receive Date: 20220613
  Receipt Date: 20220822
  Transmission Date: 20221027
  Serious: Yes (Other)
  Sender: FDA-Public Use
  Company Number: US-Blueprint Medicines Corporation-SP-US-2022-001782

PATIENT
  Age: 69 Year
  Sex: Male

DRUGS (2)
  1. AYVAKIT [Suspect]
     Active Substance: AVAPRITINIB
     Indication: Gastrointestinal stromal tumour
     Route: 048
     Dates: start: 20200410
  2. AYVAKIT [Suspect]
     Active Substance: AVAPRITINIB
     Indication: Gastrointestinal stromal tumour
     Route: 048

REACTIONS (22)
  - Cellulitis [Not Recovered/Not Resolved]
  - Neoplasm [Unknown]
  - Hernia [Not Recovered/Not Resolved]
  - Metastases to stomach [Not Recovered/Not Resolved]
  - Metastases to liver [Not Recovered/Not Resolved]
  - Fall [Unknown]
  - Inflammation [Not Recovered/Not Resolved]
  - Blood glucose increased [Not Recovered/Not Resolved]
  - Balance disorder [Unknown]
  - Gait disturbance [Unknown]
  - Dental discomfort [Not Recovered/Not Resolved]
  - Asthenia [Recovered/Resolved]
  - Haemoglobin decreased [Not Recovered/Not Resolved]
  - Anaemia [Not Recovered/Not Resolved]
  - Hypertension [Not Recovered/Not Resolved]
  - White blood cell count decreased [Unknown]
  - Weight decreased [Unknown]
  - Vomiting [Unknown]
  - Nausea [Unknown]
  - Red blood cell count decreased [Unknown]
  - Viral infection [Not Recovered/Not Resolved]
  - Hernia pain [Not Recovered/Not Resolved]

NARRATIVE: CASE EVENT DATE: 20220603
